FAERS Safety Report 8312981-4 (Version None)
Quarter: 2012Q2

REPORT INFORMATION
  Report Type: 
  Country: None (occurrence: None)
  Receive Date: 20120424
  Receipt Date: 20120410
  Transmission Date: 20120825
  Serious: Yes (Death)
  Sender: FDA-Public Use
  Company Number: ACET20120002

PATIENT
  Age: 20 Year
  Sex: Female

DRUGS (2)
  1. ACETAMINOPHEN [Suspect]
     Indication: OVERDOSE
  2. TOLPERISONE (TOLPERISONE) [Suspect]
     Indication: OVERDOSE

REACTIONS (4)
  - TOXICITY TO VARIOUS AGENTS [None]
  - VISCERAL CONGESTION [None]
  - MULTIPLE DRUG OVERDOSE [None]
  - PULMONARY OEDEMA [None]
